FAERS Safety Report 24299825 (Version 3)
Quarter: 2024Q4

REPORT INFORMATION
  Report Type: Spontaneous
  Country: DE (occurrence: DE)
  Receive Date: 20240909
  Receipt Date: 20241029
  Transmission Date: 20250114
  Serious: Yes (Other)
  Sender: DAIICHI
  Company Number: DE-DSJP-DSE-2024-143931

PATIENT
  Age: 78 Year
  Sex: Female
  Weight: 57 kg

DRUGS (13)
  1. ENHERTU [Suspect]
     Active Substance: FAM-TRASTUZUMAB DERUXTECAN-NXKI
     Indication: Non-small cell lung cancer
     Dosage: 5.4 MG/KG, CYCLIC
     Route: 042
     Dates: start: 20240814
  2. ENHERTU [Suspect]
     Active Substance: FAM-TRASTUZUMAB DERUXTECAN-NXKI
     Dosage: UNK
     Route: 042
     Dates: start: 20240904
  3. ENHERTU [Suspect]
     Active Substance: FAM-TRASTUZUMAB DERUXTECAN-NXKI
     Dosage: 3.2 MG/KG, ONCE EVERY 3 WK
     Route: 042
     Dates: start: 20240925, end: 20240925
  4. XGEVA [Concomitant]
     Active Substance: DENOSUMAB
     Indication: Product used for unknown indication
     Dosage: 120 MG, EVERY 6 WEEKS
     Route: 058
     Dates: start: 20240814
  5. CAD3 [Concomitant]
     Indication: Product used for unknown indication
     Dosage: 500/400, QD
     Route: 065
  6. APREPITANT [Concomitant]
     Active Substance: APREPITANT
     Indication: Prophylaxis of nausea and vomiting
     Dosage: 125 MG (DAY1 OF THERAPY)
     Route: 048
     Dates: start: 20240814
  7. APREPITANT [Concomitant]
     Active Substance: APREPITANT
     Dosage: 80 MG, QD (DAY 2)
     Route: 065
  8. APREPITANT [Concomitant]
     Active Substance: APREPITANT
     Dosage: 80 MG, QD (DAY 3)
     Route: 065
  9. ONDANSETRON [Concomitant]
     Active Substance: ONDANSETRON
     Indication: Prophylaxis of nausea and vomiting
     Dosage: 4 MG, BID (4 MG, 1-0-1))
     Route: 042
     Dates: start: 20240814
  10. DEXAMETHASONE [Concomitant]
     Active Substance: DEXAMETHASONE
     Indication: Prophylaxis of nausea and vomiting
     Dosage: 8 MG, QD (8 MG, 1-0-0))
     Route: 065
     Dates: start: 20240814
  11. DEXAMETHASONE [Concomitant]
     Active Substance: DEXAMETHASONE
     Dosage: 12 MG
     Route: 065
  12. SODIUM CHLORIDE [Concomitant]
     Active Substance: SODIUM CHLORIDE
     Indication: Product used for unknown indication
     Dosage: 100 ML
     Route: 065
  13. DEXTROSE [Concomitant]
     Active Substance: DEXTROSE MONOHYDRATE
     Indication: Product used for unknown indication
     Dosage: 125 ML
     Route: 065

REACTIONS (8)
  - Cardiovascular disorder [Recovering/Resolving]
  - Pain [Not Recovered/Not Resolved]
  - Weight decreased [Not Recovered/Not Resolved]
  - Diarrhoea [Recovering/Resolving]
  - Decreased appetite [Recovering/Resolving]
  - Nausea [Recovering/Resolving]
  - Intentional product use issue [Not Recovered/Not Resolved]
  - Incorrect product administration duration [Recovered/Resolved]

NARRATIVE: CASE EVENT DATE: 20240815
